FAERS Safety Report 5814354-2 (Version None)
Quarter: 2008Q3

REPORT INFORMATION
  Report Type: 
  Country: None (occurrence: None)
  Receive Date: 20080715
  Receipt Date: 20080707
  Transmission Date: 20090109
  Serious: Yes (Hospitalization)
  Sender: FDA-Public Use
  Company Number: CLOF-1000184

PATIENT
  Age: 60 Year
  Sex: Female
  Weight: 90.6 kg

DRUGS (24)
  1. CLOLAR [Suspect]
     Indication: MYELOID LEUKAEMIA
     Dosage: 67 MG, QDX5, INTRAVENOUS
     Route: 042
     Dates: start: 20080418, end: 20080422
  2. BUSULFAN (BUSULFAN) UNKNOWN [Suspect]
     Indication: MYELOID LEUKAEMIA
     Dosage: 260 MG, QD, INTRAVENOUS
     Route: 042
     Dates: start: 20080419, end: 20080422
  3. PHENYTOIN [Concomitant]
  4. MICAFUNGIN (MICAFUNGIN) [Concomitant]
  5. DEXAMETHASONE TAB [Concomitant]
  6. DEXAMETHASONE SODIUM PHOSPHATE [Concomitant]
  7. ONDANSETRON [Concomitant]
  8. PANTOPRAZOLE SODIUM [Concomitant]
  9. AZTREONAM (AZTREONAM) [Concomitant]
  10. VANCOMYCIN [Concomitant]
  11. URSODIOL [Concomitant]
  12. CYCLOSPORINE [Concomitant]
  13. FLUCONAZOLE [Concomitant]
  14. ALLOPURINOL [Concomitant]
  15. PROCHLORPERAZINE EDISYLATE [Concomitant]
  16. PROCHLORPERAZINE MALEATE (PROCHLORPERAZINE MALEATE) [Concomitant]
  17. ACETAMINOPHEN [Concomitant]
  18. DIPHENHYDRAMINE HCL [Concomitant]
  19. ZOLPIDEM TARTRATE [Concomitant]
  20. LORAZEPAM [Concomitant]
  21. OXYCODONE HCL [Concomitant]
  22. CALCIUM CLUGONATE (CALCIUM GLUCONATE) [Concomitant]
  23. FUROSEMIDE [Concomitant]
  24. TACROLIMUS [Concomitant]

REACTIONS (10)
  - CLOSTRIDIUM DIFFICILE COLITIS [None]
  - CULTURE URINE POSITIVE [None]
  - DYSURIA [None]
  - ENTEROBACTER INFECTION [None]
  - GRAFT VERSUS HOST DISEASE [None]
  - INTERVERTEBRAL DISC PROTRUSION [None]
  - MICTURITION URGENCY [None]
  - PSEUDOMONAS INFECTION [None]
  - SPINAL OSTEOARTHRITIS [None]
  - STEM CELL TRANSPLANT [None]
